FAERS Safety Report 5161730-X (Version None)
Quarter: 2006Q4

REPORT INFORMATION
  Report Type: 
  Country: None (occurrence: None)
  Receive Date: 20061130
  Receipt Date: 20000525
  Transmission Date: 20070319
  Serious: Yes (Other)
  Sender: FDA-Public Use
  Company Number: FR-GLAXOSMITHKLINE-B0082423A

PATIENT
  Age: 4 Week
  Sex: Female

DRUGS (6)
  1. ZIDOVUDINE [Suspect]
     Indication: ANTIVIRAL PROPHYLAXIS
     Route: 048
     Dates: start: 19971223
  2. LAMIVUDINE [Suspect]
     Indication: ANTIVIRAL PROPHYLAXIS
     Route: 048
     Dates: start: 19971223
  3. ZIDOVUDINE [Suspect]
  4. LAMIVUDINE [Suspect]
  5. ZIDOVUDINE [Suspect]
     Route: 042
     Dates: start: 19971223, end: 19971223
  6. COTRIM D.S. [Concomitant]

REACTIONS (15)
  - ALANINE AMINOTRANSFERASE INCREASED [None]
  - APPARENT LIFE THREATENING EVENT [None]
  - ASPARTATE AMINOTRANSFERASE INCREASED [None]
  - BLOOD LACTIC ACID INCREASED [None]
  - BLOOD PYRUVIC ACID INCREASED [None]
  - CEREBRAL ATROPHY [None]
  - CONVULSION [None]
  - DRUG EXPOSURE DURING PREGNANCY [None]
  - FEBRILE CONVULSION [None]
  - HEPATOMEGALY [None]
  - HYPOTONIA [None]
  - MALAISE [None]
  - METABOLIC DISORDER [None]
  - MITOCHONDRIAL CYTOPATHY [None]
  - NERVOUS SYSTEM DISORDER [None]
